FAERS Safety Report 9230721 (Version 1)
Quarter: 2013Q2

REPORT INFORMATION
  Report Type: Spontaneous
  Country: BR (occurrence: BR)
  Receive Date: 20130415
  Receipt Date: 20130415
  Transmission Date: 20140414
  Serious: Yes (Death)
  Sender: FDA-Public Use
  Company Number: BR-JNJFOC-20130406694

PATIENT
  Sex: 0

DRUGS (3)
  1. LISTERINE ZERO [Suspect]
     Indication: FOETAL EXPOSURE DURING PREGNANCY
     Route: 064
     Dates: start: 20120410, end: 20120814
  2. LISTERINE UNSPECIFIED [Suspect]
     Indication: FOETAL EXPOSURE DURING PREGNANCY
     Route: 064
  3. UTROGESTAN [Suspect]
     Indication: FOETAL EXPOSURE DURING PREGNANCY
     Route: 064
     Dates: start: 20120817

REACTIONS (2)
  - Death neonatal [Fatal]
  - Foetal disorder [Unknown]
